FAERS Safety Report 10296530 (Version 1)
Quarter: 2014Q3

REPORT INFORMATION
  Report Type: Spontaneous
  Country: US (occurrence: None)
  Receive Date: 20140708
  Receipt Date: 20140708
  Transmission Date: 20150326
  Serious: Yes (Hospitalization)
  Sender: FDA-Public Use
  Company Number: AUR-APL-2014-06902

PATIENT
  Age: 70 Year
  Sex: Female

DRUGS (13)
  1. TRAMADOL (TRAMADOL) [Concomitant]
     Active Substance: TRAMADOL
  2. NIACIN (NICOTINIC ACID) [Concomitant]
  3. ASPIRIN (ACETYLSALICYLIC ACID) [Concomitant]
     Active Substance: ASPIRIN
  4. PRAVASTATIN [Concomitant]
     Active Substance: PRAVASTATIN\PRAVASTATIN SODIUM
  5. METOPROLOL (METOPROLOL) [Concomitant]
     Active Substance: METOPROLOL
  6. GABAPENTIN. [Suspect]
     Active Substance: GABAPENTIN
     Indication: PAIN
     Dates: start: 201108
  7. HYDRALAZINE (HYDRALAZINE) [Concomitant]
     Active Substance: HYDRALAZINE HYDROCHLORIDE
  8. FUROSEMIDE (FUROSEMIDE) [Concomitant]
     Active Substance: FUROSEMIDE
  9. CLONIDINE (CLONIDINE) [Concomitant]
     Active Substance: CLONIDINE
  10. BISACODYL (BISACODYL) [Concomitant]
     Active Substance: BISACODYL
  11. MEGESTROL (MEGESTROL) [Concomitant]
  12. HYDROCODONE/ACETAMINOPHEN /00607101/ (HYDROCODONE BITARTRATE, PARACETAMOL) [Concomitant]
  13. DOXAZOSIN [Concomitant]
     Active Substance: DOXAZOSIN\DOXAZOSIN MESYLATE

REACTIONS (6)
  - Tremor [None]
  - Dyskinesia [None]
  - Tardive dyskinesia [None]
  - Chorea [None]
  - Ischaemia [None]
  - Drug interaction [None]
